FAERS Safety Report 9193167 (Version 2)
Quarter: 2013Q4

REPORT INFORMATION
  Report Type: Spontaneous
  Country: DK (occurrence: DK)
  Receive Date: 20130327
  Receipt Date: 20131213
  Transmission Date: 20140711
  Serious: Yes (Hospitalization)
  Sender: FDA-Public Use
  Company Number: DK-NOVOPROD-373949

PATIENT
  Age: 74 Year
  Sex: Female
  Weight: 72 kg

DRUGS (2)
  1. ACTIVELLE [Suspect]
     Indication: HORMONE THERAPY
     Dosage: 1 TAB, QD
     Route: 048
     Dates: start: 2007
  2. ACTIVELLE [Suspect]
     Dosage: DOSIS: 1 TABLET 1 GANG DAGLIGT, STYRKE: 0,5 + 1 MG
     Route: 048
     Dates: start: 2007

REACTIONS (4)
  - Erythema [Unknown]
  - Pain in extremity [Unknown]
  - Deep vein thrombosis [Recovered/Resolved]
  - Oedema peripheral [Unknown]
